FAERS Safety Report 24647808 (Version 1)
Quarter: 2024Q4

REPORT INFORMATION
  Report Type: Spontaneous
  Country: US (occurrence: None)
  Receive Date: 20241121
  Receipt Date: 20241121
  Transmission Date: 20250115
  Serious: Yes (Hospitalization)
  Sender: Public
  Company Number: None

PATIENT
  Age: 28 Year
  Sex: Female

DRUGS (8)
  1. GAMMAGARD LIQUID [Suspect]
     Active Substance: HUMAN IMMUNOGLOBULIN G
     Indication: Immunodeficiency common variable
     Dosage: OTHER STRENGTH : 5 GM/50ML;??INFUSE 45 GRAMS (450 ML) INTRAVENOUSLY ONCE EVERY 3 WEEKS VIA CURLIN PU
     Dates: start: 20230603
  2. COSENTYX [Concomitant]
     Active Substance: SECUKINUMAB
  3. GAMMAGARD LIQUID [Concomitant]
     Active Substance: HUMAN IMMUNOGLOBULIN G
  4. HEPARIN LOCK FLUSH [Concomitant]
     Active Substance: HEPARIN SODIUM
  5. LACTATED RINGERS SOLUTION [Concomitant]
     Active Substance: CALCIUM CHLORIDE\POTASSIUM CHLORIDE\SODIUM CHLORIDE\SODIUM LACTATE
  6. MONOJECT PREFILL ADVANCED [Concomitant]
  7. MULTIVITAMIN TAB WOMENS [Concomitant]
  8. SODIUM CHLORIDE [Concomitant]
     Active Substance: SODIUM CHLORIDE

REACTIONS (2)
  - Vascular device infection [None]
  - Haematological infection [None]

NARRATIVE: CASE EVENT DATE: 20241120
